FAERS Safety Report 9833444 (Version 5)
Quarter: 2014Q1

REPORT INFORMATION
  Report Type: Report from Study
  Country: CA (occurrence: CA)
  Receive Date: 20140122
  Receipt Date: 20140325
  Transmission Date: 20141002
  Serious: Yes (Hospitalization, Other)
  Sender: FDA-Public Use
  Company Number: CA-AMGEN-CANCT2014003752

PATIENT
  Age: 69 Year
  Sex: Male

DRUGS (6)
  1. DENOSUMAB [Suspect]
     Indication: HORMONE-REFRACTORY PROSTATE CANCER
     Dosage: 1.7 ML, QMO
     Route: 058
     Dates: start: 20110113, end: 20140108
  2. ASPIRIN [Concomitant]
     Dosage: 81 MG, QD
     Route: 048
  3. VITAMIN D                          /00107901/ [Concomitant]
     Dosage: 200 IU, QD
     Route: 048
  4. CALCIUM [Concomitant]
     Dosage: 1 G, QD
     Route: 048
  5. HYZAAR [Concomitant]
     Dosage: 50/12.5 ML, QD
     Route: 048
  6. ZOLADEX                            /00732101/ [Concomitant]
     Dosage: 10.8 MG, UNK

REACTIONS (1)
  - Fracture nonunion [Recovering/Resolving]
